FAERS Safety Report 9484607 (Version 1)
Quarter: 2013Q3

REPORT INFORMATION
  Report Type: Spontaneous
  Country: US (occurrence: US)
  Receive Date: 20130828
  Receipt Date: 20130828
  Transmission Date: 20140515
  Serious: Yes (Other)
  Sender: FDA-Public Use
  Company Number: US-AMGEN-KDL428628

PATIENT
  Age: 63 Year
  Sex: Male
  Weight: 85.8 kg

DRUGS (4)
  1. ENBREL [Suspect]
     Indication: PRODUCT USED FOR UNKNOWN INDICATION
     Dosage: 50 MG, QWK
     Route: 058
  2. METHOTREXATE [Concomitant]
     Dosage: 2.5 MG, UNK
  3. HYDROCODONE [Concomitant]
  4. OLMESARTAN MEDOXOMIL [Concomitant]
     Dosage: 5 MG, UNK

REACTIONS (2)
  - Ulcer [Unknown]
  - Rheumatoid arthritis [Unknown]
